FAERS Safety Report 8901678 (Version 1)
Quarter: 2012Q4

REPORT INFORMATION
  Report Type: Spontaneous
  Country: US (occurrence: None)
  Receive Date: 20121108
  Receipt Date: 20121108
  Transmission Date: 20130627
  Serious: Yes (Life-Threatening, Other)
  Sender: FDA-Public Use
  Company Number: None

PATIENT
  Age: 68 Year
  Sex: Female
  Weight: 83.01 kg

DRUGS (5)
  1. CLOPIDOGREL [Suspect]
     Indication: STROKE
     Dosage: 75 MG ONE A DAY PO
     Route: 048
     Dates: start: 20020705, end: 20121107
  2. CLOPIDOGREL [Suspect]
     Dosage: 75 MG ONE A DAY PO
     Route: 048
     Dates: start: 20020705, end: 20121107
  3. CLOPIDOGREL [Suspect]
     Indication: STROKE
  4. CLOPIDOGREL [Suspect]
  5. PANTOPRAZOLE SODIUM [Suspect]
     Indication: GERD
     Dosage: 40 MG ONE A DAY PO
     Route: 048
     Dates: start: 20120724, end: 20121002

REACTIONS (1)
  - Thrombosis [None]
